FAERS Safety Report 21193870 (Version 2)
Quarter: 2022Q3

REPORT INFORMATION
  Report Type: Spontaneous
  Country: US (occurrence: US)
  Receive Date: 20220810
  Receipt Date: 20220902
  Transmission Date: 20221027
  Serious: No
  Sender: FDA-Public Use
  Company Number: US-APOTEX-2022AP010705

PATIENT
  Sex: Male

DRUGS (1)
  1. ATROPINE SULFATE [Suspect]
     Active Substance: ATROPINE SULFATE
     Indication: Mydriasis
     Dosage: 1 GTT DROPS, BID (1 DROP IN THE LEFT EYE IN THE MORNING AND 1 DROP IN THE LEFT EYE AT NIGHT)
     Route: 047
     Dates: start: 20220722, end: 2022

REACTIONS (1)
  - Urticaria [Recovered/Resolved]

NARRATIVE: CASE EVENT DATE: 20220701
